FAERS Safety Report 6569671-8 (Version None)
Quarter: 2010Q1

REPORT INFORMATION
  Report Type: 
  Country: None (occurrence: None)
  Receive Date: 20100204
  Receipt Date: 20100122
  Transmission Date: 20100710
  Serious: No
  Sender: FDA-Public Use
  Company Number: PHHY2009JP36851

PATIENT
  Sex: Female

DRUGS (9)
  1. AMN107 AMN+CAP [Suspect]
     Indication: CHRONIC MYELOID LEUKAEMIA
     Dosage: 800 MG DAILY
     Route: 048
     Dates: start: 20090609, end: 20090623
  2. AMN107 AMN+CAP [Suspect]
     Dosage: 400 MG DAILY
     Route: 048
     Dates: start: 20090630
  3. WARFARIN SODIUM [Concomitant]
     Dosage: 2 MG, UNK
     Route: 048
     Dates: start: 20090609
  4. TRITEREN [Concomitant]
     Dosage: 100 MG, UNK
     Route: 048
     Dates: start: 20090609
  5. ARTIST [Concomitant]
     Dosage: 10 MG, UNK
     Route: 048
     Dates: start: 20090609
  6. BEPRICOR [Concomitant]
     Dosage: 150 MG, UNK
     Route: 048
     Dates: start: 20090609
  7. TAKEPRON [Concomitant]
     Dosage: 30 MG, UNK
     Route: 048
     Dates: start: 20090609
  8. LAC B [Concomitant]
     Dosage: 3 G, UNK
     Route: 048
     Dates: start: 20090609
  9. GASMOTIN [Concomitant]
     Dosage: 15 MG, UNK
     Route: 048
     Dates: start: 20090609

REACTIONS (2)
  - VENTRICULAR EXTRASYSTOLES [None]
  - WEIGHT DECREASED [None]
